FAERS Safety Report 6005427-2 (Version None)
Quarter: 2008Q4

REPORT INFORMATION
  Report Type: 
  Country: None (occurrence: None)
  Receive Date: 20081217
  Receipt Date: 20081212
  Transmission Date: 20090506
  Serious: Yes (Death, Life-Threatening, Hospitalization, Other)
  Sender: FDA-Public Use
  Company Number: GB-WYE-G02632408

PATIENT
  Age: 94 Year
  Sex: Female

DRUGS (11)
  1. IBUPROFEN [Suspect]
     Indication: OSTEOARTHRITIS
     Route: 048
     Dates: start: 20080816, end: 20080820
  2. ALENDRONIC ACID [Concomitant]
     Route: 048
     Dates: end: 20080909
  3. ACETYLSALICYLIC ACID [Concomitant]
     Indication: PROPHYLAXIS
     Dosage: 75MG, FREQUENCY UNKNOWN
     Route: 048
     Dates: start: 20080905
  4. BENDROFLUMETHIAZIDE [Concomitant]
     Indication: HYPERTENSION
     Dosage: UNKNOWN DOSE, ONCE DAILY
     Route: 048
     Dates: end: 20080905
  5. TRAMADOL HCL [Concomitant]
     Route: 048
     Dates: start: 20080821, end: 20080916
  6. DALTEPARIN SODIUM [Concomitant]
     Indication: THROMBOSIS PROPHYLAXIS
     Dosage: 5000IU, FREQUENCY UNKNOWN
     Route: 058
     Dates: start: 20080816, end: 20080905
  7. FERROUS SULFATE TAB [Concomitant]
     Route: 048
  8. NIFEDIPINE [Concomitant]
     Indication: HYPERTENSION
     Route: 048
     Dates: end: 20080905
  9. ACETAMINOPHEN [Concomitant]
     Indication: PAIN
     Route: 048
  10. DICLOFENAC SODIUM [Suspect]
     Indication: OSTEOARTHRITIS
     Route: 048
     Dates: start: 20080820, end: 20080905
  11. CEFALEXIN [Concomitant]
     Route: 048
     Dates: start: 20080816, end: 20080822

REACTIONS (3)
  - DEATH [None]
  - GASTROINTESTINAL HAEMORRHAGE [None]
  - MELAENA [None]
